FAERS Safety Report 5593060-6 (Version None)
Quarter: 2007Q4

REPORT INFORMATION
  Report Type: 
  Country: None (occurrence: None)
  Receive Date: 20071217
  Receipt Date: 20071102
  Transmission Date: 20080405
  Serious: No
  Sender: FDA-Public Use
  Company Number: BDI-010499

PATIENT
  Age: 61 Year
  Sex: Female
  Weight: 68 kg

DRUGS (2)
  1. MULTIHANCE [Suspect]
     Indication: NUCLEAR MAGNETIC RESONANCE IMAGING BRAIN
     Dosage: 15 ML ONCE IV
     Route: 042
     Dates: start: 20071025, end: 20071025
  2. PREDNISONE [Concomitant]

REACTIONS (3)
  - COUGH [None]
  - DYSPNOEA [None]
  - THROAT TIGHTNESS [None]
